FAERS Safety Report 12367038 (Version 1)
Quarter: 2016Q2

REPORT INFORMATION
  Report Type: Spontaneous
  Country: US (occurrence: US)
  Receive Date: 20160513
  Receipt Date: 20160513
  Transmission Date: 20160815
  Serious: No
  Sender: FDA-Public Use
  Company Number: US-HORIZON-DUE-0082-2016

PATIENT
  Age: 57 Year
  Sex: Female

DRUGS (4)
  1. VITAMIN D [Concomitant]
     Active Substance: CHOLECALCIFEROL
  2. GLUCOSAMINE [Concomitant]
     Active Substance: GLUCOSAMINE
  3. DUEXIS [Suspect]
     Active Substance: FAMOTIDINE\IBUPROFEN
     Indication: LACERATION
     Dosage: 1 DF ONCE DAILY
     Route: 048
     Dates: start: 20160422, end: 20160504
  4. CALCIUM ESTRADIOL [Concomitant]

REACTIONS (4)
  - Pain [Unknown]
  - Intentional product use issue [Unknown]
  - Off label use [Unknown]
  - Therapy cessation [Unknown]

NARRATIVE: CASE EVENT DATE: 20160504
